FAERS Safety Report 6413521-7 (Version None)
Quarter: 2009Q4

REPORT INFORMATION
  Report Type: 
  Country: None (occurrence: None)
  Receive Date: 20091020
  Receipt Date: 20091009
  Transmission Date: 20100525
  Serious: Yes (Other)
  Sender: FDA-Public Use
  Company Number: GXKR2009FR10479

PATIENT
  Sex: Female

DRUGS (7)
  1. AZATHIOPRINE [Suspect]
     Indication: DERMATOMYOSITIS
     Dosage: 150 MG DAY
     Dates: start: 20020101, end: 20070501
  2. METHOTREXATE [Suspect]
     Indication: DERMATOMYOSITIS
     Dosage: 15 MG WEEK, 20 MG WEEK
     Dates: end: 20000101
  3. METHOTREXATE [Suspect]
     Indication: DERMATOMYOSITIS
     Dosage: 15 MG WEEK, 20 MG WEEK
     Dates: start: 19980101
  4. PREDNISONE [Suspect]
     Indication: DERMATOMYOSITIS
     Dosage: 1 MG KG DAY
  5. EDETATE CALCIUM DISODIUM [Suspect]
     Indication: CALCINOSIS
     Dosage: SUBCUTANEOUS
     Route: 058
     Dates: start: 20061101
  6. PAMIDRONIC ACID (PAMIDRONIC ACID) [Concomitant]
  7. IMMUNOGLOBULINS (IMMOGLOBULINS) [Concomitant]

REACTIONS (8)
  - EPSTEIN-BARR VIRUS ASSOCIATED LYMPHOPROLIFERATIVE DISORDER [None]
  - FISTULA [None]
  - GASTROINTESTINAL DISORDER [None]
  - MUSCLE HYPERTROPHY [None]
  - PAIN [None]
  - SKIN NECROSIS [None]
  - SOFT TISSUE NEOPLASM [None]
  - THROMBOSIS [None]
